FAERS Safety Report 4375213-8 (Version None)
Quarter: 2004Q2

REPORT INFORMATION
  Report Type: 
  Country: None (occurrence: None)
  Receive Date: 20040607
  Receipt Date: 20030819
  Transmission Date: 20050107
  Serious: Yes (Other)
  Sender: FDA-Public Use
  Company Number: 345087

PATIENT
  Age: 19 Year
  Sex: Female
  Weight: 61.2 kg

DRUGS (2)
  1. ACCUTANE [Suspect]
     Indication: ACNE
     Dosage: ORAL
     Route: 048
     Dates: start: 20020415, end: 20021015
  2. ORTHO TRI-CYCLEN [Concomitant]

REACTIONS (3)
  - ADVERSE EVENT [None]
  - DEPRESSION [None]
  - MYALGIA [None]
